FAERS Safety Report 20975770 (Version 1)
Quarter: 2022Q2

REPORT INFORMATION
  Report Type: Spontaneous
  Country: CN (occurrence: CN)
  Receive Date: 20220617
  Receipt Date: 20220617
  Transmission Date: 20220720
  Serious: Yes (Hospitalization)
  Sender: FDA-Public Use
  Company Number: CN-JNJFOC-20220626345

PATIENT
  Age: 49 Year
  Sex: Female
  Weight: 39 kg

DRUGS (2)
  1. FENTANYL [Suspect]
     Active Substance: FENTANYL
     Indication: Analgesic therapy
     Route: 062
     Dates: start: 20220422
  2. FENTANYL [Suspect]
     Active Substance: FENTANYL
     Route: 062
     Dates: start: 20220606, end: 20220610

REACTIONS (1)
  - Intestinal obstruction [Recovering/Resolving]

NARRATIVE: CASE EVENT DATE: 20220609
